FAERS Safety Report 9471306 (Version 1)
Quarter: 2013Q3

REPORT INFORMATION
  Report Type: Spontaneous
  Country: GB (occurrence: GB)
  Receive Date: 20130822
  Receipt Date: 20130822
  Transmission Date: 20140515
  Serious: Yes (Hospitalization)
  Sender: FDA-Public Use
  Company Number: GB-UCBSA-095500

PATIENT
  Age: 74 Year
  Sex: Male
  Weight: 81 kg

DRUGS (2)
  1. ROTIGOTINE [Suspect]
     Indication: PARKINSON^S DISEASE
     Dosage: DOSE : 6 MG
     Route: 062
     Dates: start: 20111005
  2. RASAGILINE [Suspect]
     Indication: PARKINSON^S DISEASE
     Dosage: DOSE: 1 MG
     Route: 048
     Dates: start: 20110101

REACTIONS (3)
  - Colonic pseudo-obstruction [Recovered/Resolved with Sequelae]
  - Constipation [Not Recovered/Not Resolved]
  - Abdominal distension [Not Recovered/Not Resolved]
